FAERS Safety Report 5687256-2 (Version None)
Quarter: 2008Q1

REPORT INFORMATION
  Report Type: 
  Country: None (occurrence: None)
  Receive Date: 20080328
  Receipt Date: 20070501
  Transmission Date: 20080703
  Serious: No
  Sender: FDA-Public Use
  Company Number: US-BAYER-US-2007-015349

PATIENT
  Age: 40 Year
  Sex: Female
  Weight: 57 kg

DRUGS (3)
  1. MIRENA [Suspect]
     Indication: CONTRACEPTION
     Route: 015
     Dates: start: 20070413, end: 20070501
  2. ZYRTEC [Concomitant]
  3. CLONOPIN [Concomitant]
     Dosage: UNIT DOSE: 0.5 MG
     Route: 048

REACTIONS (4)
  - BREAST TENDERNESS [None]
  - DYSMENORRHOEA [None]
  - HEADACHE [None]
  - MOOD ALTERED [None]
